FAERS Safety Report 9090847 (Version 1)
Quarter: 2013Q1

REPORT INFORMATION
  Report Type: Report from Study
  Country: US (occurrence: US)
  Receive Date: 20130201
  Receipt Date: 20130201
  Transmission Date: 20140127
  Serious: No
  Sender: FDA-Public Use
  Company Number: US-ABBOTT-13P-163-1030167-00

PATIENT
  Age: 63 None
  Sex: Female
  Weight: 90.8 kg

DRUGS (12)
  1. HUMIRA [Suspect]
     Indication: ANKYLOSING SPONDYLITIS
     Dates: start: 201208, end: 201212
  2. HUMIRA [Suspect]
     Indication: CROHN^S DISEASE
     Dates: start: 201212
  3. NADOLOL [Concomitant]
     Indication: EHLERS-DANLOS SYNDROME
  4. TRAMADOL [Concomitant]
     Indication: PRODUCT USED FOR UNKNOWN INDICATION
  5. LIDODERM [Concomitant]
     Indication: BACK PAIN
     Dosage: PATCH
  6. EFFEXOR [Concomitant]
     Indication: DEPRESSION
  7. ADDERALL [Concomitant]
     Indication: DRUG THERAPY ENHANCEMENT
  8. LIPITOR [Concomitant]
     Indication: BLOOD CHOLESTEROL
  9. LUNESTA [Concomitant]
     Indication: INSOMNIA
  10. NASONEX [Concomitant]
     Indication: PRODUCT USED FOR UNKNOWN INDICATION
  11. VALSARTAN HCTZ [Concomitant]
     Indication: PRODUCT USED FOR UNKNOWN INDICATION
  12. ASTELIN [Concomitant]
     Indication: PRODUCT USED FOR UNKNOWN INDICATION

REACTIONS (3)
  - Frequent bowel movements [Recovering/Resolving]
  - Sinusitis [Recovering/Resolving]
  - Back pain [Recovering/Resolving]
